FAERS Safety Report 9769749 (Version 2)
Quarter: 2013Q4

REPORT INFORMATION
  Report Type: Spontaneous
  Country: US (occurrence: US)
  Receive Date: 20131218
  Receipt Date: 20131218
  Transmission Date: 20140711
  Serious: No
  Sender: FDA-Public Use
  Company Number: US-VERTEX PHARMACEUTICALS INC-AE-2011-000525

PATIENT
  Age: 58 Year
  Sex: Female
  Weight: 73.18 kg

DRUGS (8)
  1. INCIVEK [Suspect]
     Indication: HEPATITIS C
     Dates: start: 20110604
  2. PEGASYS [Concomitant]
     Indication: HEPATITIS C
     Route: 058
     Dates: start: 20110604
  3. RIBAVIRIN [Concomitant]
     Indication: HEPATITIS C
     Dates: start: 20110604
  4. MULTIVITAMIN [Concomitant]
     Dates: start: 2008
  5. CALCIUM [Concomitant]
     Dates: start: 2008
  6. NEXIUM [Concomitant]
     Dates: start: 2008
  7. VITAMIN D [Concomitant]
     Dates: start: 2008
  8. VITAMIN B12 [Concomitant]
     Route: 060

REACTIONS (5)
  - Somnolence [Recovered/Resolved]
  - Decreased appetite [Not Recovered/Not Resolved]
  - Anorectal discomfort [Recovered/Resolved]
  - Nausea [Recovered/Resolved]
  - Rash pruritic [Not Recovered/Not Resolved]
